FAERS Safety Report 18366574 (Version 2)
Quarter: 2020Q4

REPORT INFORMATION
  Report Type: Spontaneous
  Country: US (occurrence: US)
  Receive Date: 20201009
  Receipt Date: 20201130
  Transmission Date: 20210114
  Serious: No
  Sender: FDA-Public Use
  Company Number: US-ASTRAZENECA-2020SF19378

PATIENT
  Sex: Female
  Weight: 74.8 kg

DRUGS (1)
  1. SYMBICORT [Suspect]
     Active Substance: BUDESONIDE\FORMOTEROL FUMARATE DIHYDRATE
     Indication: ASTHMA
     Dosage: 160/4.5 INHALE TWO PUFFS TWICE DAILY
     Route: 055
     Dates: start: 2017

REACTIONS (3)
  - Wrong technique in device usage process [Unknown]
  - Device delivery system issue [Unknown]
  - Cough [Unknown]
